FAERS Safety Report 13213402 (Version 1)
Quarter: 2017Q1

REPORT INFORMATION
  Report Type: Spontaneous
  Country: US (occurrence: US)
  Receive Date: 20170209
  Receipt Date: 20170209
  Transmission Date: 20170428
  Serious: No
  Sender: FDA-Public Use
  Company Number: US-ALLERGAN-1675669US

PATIENT
  Sex: Female

DRUGS (7)
  1. HYDROCODONE [Concomitant]
     Active Substance: HYDROCODONE
     Indication: PAIN
     Dosage: 10/35
     Route: 048
  2. BOTOX [Suspect]
     Active Substance: ONABOTULINUMTOXINA
     Indication: URINARY HESITATION
     Dosage: UNK, SINGLE
     Route: 043
     Dates: start: 2016
  3. METFORMIN [Concomitant]
     Active Substance: METFORMIN HYDROCHLORIDE
     Indication: TYPE 2 DIABETES MELLITUS
     Dosage: 500 MG, UNK
  4. VALIUM [Concomitant]
     Active Substance: DIAZEPAM
     Indication: PRODUCT USED FOR UNKNOWN INDICATION
     Dosage: 5 MG, UNK
     Route: 048
  5. AMLODIPINE [Concomitant]
     Active Substance: AMLODIPINE BESYLATE
     Indication: HYPERTENSION
     Dosage: 5 MG, UNK
     Route: 048
  6. DUREZOL [Concomitant]
     Active Substance: DIFLUPREDNATE
     Indication: INFECTION
     Dosage: 1 GTT, BID
     Route: 047
  7. DIFLUPREDNATE [Concomitant]
     Active Substance: DIFLUPREDNATE
     Indication: INFECTION
     Dosage: UNK
     Route: 047

REACTIONS (1)
  - Drug ineffective [Unknown]
